FAERS Safety Report 5237745-X (Version None)
Quarter: 2007Q1

REPORT INFORMATION
  Report Type: 
  Country: None (occurrence: None)
  Receive Date: 20070214
  Receipt Date: 20070209
  Transmission Date: 20070707
  Serious: Yes (Life-Threatening, Hospitalization, Other)
  Sender: FDA-Public Use
  Company Number: US-GLAXOSMITHKLINE-A0629770A

PATIENT
  Age: 79 Year
  Sex: Female
  Weight: 61.8 kg

DRUGS (3)
  1. VALTREX [Suspect]
     Dosage: 1CAPL THREE TIMES PER DAY
     Route: 048
     Dates: start: 20061120, end: 20061123
  2. PREDNISONE [Concomitant]
     Dosage: 40MG UNKNOWN
     Route: 048
     Dates: start: 20061120, end: 20061123
  3. LIPITOR [Concomitant]
     Dosage: 10MG PER DAY
     Route: 048
     Dates: start: 20061102, end: 20061123

REACTIONS (6)
  - BLOOD ALBUMIN DECREASED [None]
  - BLOOD CREATININE INCREASED [None]
  - BLOOD UREA INCREASED [None]
  - CONFUSIONAL STATE [None]
  - RENAL FAILURE [None]
  - RENAL FUNCTION TEST ABNORMAL [None]
